FAERS Safety Report 8548640 (Version 2)
Quarter: 2013Q1

REPORT INFORMATION
  Report Type: Other
  Country: US (occurrence: US)
  Receive Date: 20120507
  Receipt Date: 20130301
  Transmission Date: 20140127
  Serious: Yes (Other)
  Sender: FDA-Public Use
  Company Number: US-NAPPMUNDI-DEU-2012-0008869

PATIENT
  Age: 57 Year
  Sex: Male

DRUGS (3)
  1. HYDROMORPHONE HCL INJECTABLE [Suspect]
     Indication: CANCER PAIN
     Dosage: 20 MG, SEE TEXT
     Route: 042
  2. HYDROMORPHONE HCL INJECTABLE [Suspect]
     Dosage: 0.4 MG, SEE TEXT
     Route: 042
  3. METHADONE [Suspect]
     Indication: CANCER PAIN
     Dosage: 150 MG, BID

REACTIONS (5)
  - Neurotoxicity [Recovered/Resolved]
  - Delirium [Recovered/Resolved]
  - Myoclonus [Recovered/Resolved]
  - Muscle spasms [Recovered/Resolved]
  - Confusional state [Recovered/Resolved]
